FAERS Safety Report 12499868 (Version 5)
Quarter: 2016Q4

REPORT INFORMATION
  Report Type: Report from Study
  Country: US (occurrence: US)
  Receive Date: 20160627
  Receipt Date: 20161227
  Transmission Date: 20170207
  Serious: Yes (Death, Hospitalization)
  Sender: FDA-Public Use
  Company Number: US-JNJFOC-20160620864

PATIENT
  Age: 88 Year
  Sex: Female
  Weight: 43 kg

DRUGS (19)
  1. TRAMADOL HYDROCHLORIDE                          /00599202/ [Concomitant]
     Indication: PAIN
  2. VACCINIUM MACROCARPON [Concomitant]
     Active Substance: CRANBERRY
  3. DOCUSATE SODIUM. [Concomitant]
     Active Substance: DOCUSATE SODIUM
     Indication: CONSTIPATION
  4. IMBRUVICA [Suspect]
     Active Substance: IBRUTINIB
     Indication: CHRONIC LYMPHOCYTIC LEUKAEMIA
     Route: 048
     Dates: start: 20151221, end: 20160617
  5. CALCIUM CARBONATE W/COLECALCIFEROL [Concomitant]
     Active Substance: CALCIUM CARBONATE\CHOLECALCIFEROL
     Dosage: 600 PLUS
  6. PRAMOXINE [Concomitant]
     Active Substance: PRAMOXINE
     Indication: HAEMORRHOIDS
  7. IMBRUVICA [Suspect]
     Active Substance: IBRUTINIB
     Indication: CHRONIC LYMPHOCYTIC LEUKAEMIA
     Route: 048
     Dates: start: 20160701
  8. LEVOTHYROXINE SODIUM. [Concomitant]
     Active Substance: LEVOTHYROXINE SODIUM
  9. PROZAC [Suspect]
     Active Substance: FLUOXETINE HYDROCHLORIDE
     Indication: PRODUCT USED FOR UNKNOWN INDICATION
  10. ZYRTEC [Concomitant]
     Active Substance: CETIRIZINE HYDROCHLORIDE
  11. CYMBALTA [Suspect]
     Active Substance: DULOXETINE HYDROCHLORIDE
     Indication: PRODUCT USED FOR UNKNOWN INDICATION
  12. ASCORBIC ACID. [Concomitant]
     Active Substance: ASCORBIC ACID
  13. PHENERGAN [Concomitant]
     Active Substance: PROMETHAZINE HYDROCHLORIDE
  14. ARICEPT [Concomitant]
     Active Substance: DONEPEZIL HYDROCHLORIDE
  15. TORSEMIDE. [Concomitant]
     Active Substance: TORSEMIDE
  16. FISH OIL W/TOCOPHEROL [Concomitant]
     Route: 048
  17. FUROSEMIDE. [Concomitant]
     Active Substance: FUROSEMIDE
  18. AMIODARONE HYDROCHLORIDE. [Concomitant]
     Active Substance: AMIODARONE HYDROCHLORIDE
  19. MELOXICAM. [Concomitant]
     Active Substance: MELOXICAM

REACTIONS (14)
  - Hypoacusis [Unknown]
  - Death [Fatal]
  - Delirium [Recovering/Resolving]
  - Asthenia [Unknown]
  - Product use issue [Recovered/Resolved]
  - Urinary tract infection bacterial [Unknown]
  - Off label use [Recovered/Resolved]
  - Visual impairment [Unknown]
  - Hallucination [Recovering/Resolving]
  - Dementia [Unknown]
  - Paranoia [Unknown]
  - Leukopenia [Unknown]
  - Depression [Unknown]
  - Confusional state [Recovering/Resolving]

NARRATIVE: CASE EVENT DATE: 20151221
